FAERS Safety Report 11561087 (Version 1)
Quarter: 2015Q3

REPORT INFORMATION
  Report Type: Report from Study
  Country: US (occurrence: US)
  Receive Date: 20150928
  Receipt Date: 20150928
  Transmission Date: 20151125
  Serious: No
  Sender: FDA-Public Use
  Company Number: PHEH2015US018811

PATIENT
  Sex: Female

DRUGS (1)
  1. COARTEM [Suspect]
     Active Substance: ARTEMETHER\LUMEFANTRINE
     Indication: BABESIOSIS
     Dosage: 20 MG, 4 TABS TWICE DAILY WITH FOOD FOR 3 DAYS, OFF 4 DAYS, CONTINUE CYCLE
     Route: 048

REACTIONS (1)
  - Product use issue [Unknown]
